FAERS Safety Report 10240584 (Version 1)
Quarter: 2014Q2

REPORT INFORMATION
  Report Type: Spontaneous
  Country: US (occurrence: None)
  Receive Date: 20140613
  Receipt Date: 20140613
  Transmission Date: 20141212
  Serious: No
  Sender: FDA-Public Use
  Company Number: None

PATIENT
  Age: 86 Year
  Sex: Male
  Weight: 72.58 kg

DRUGS (8)
  1. FOLIC ACID 1 MG TABS [Suspect]
     Indication: HAEMOGLOBIN DECREASED
     Dosage: 1 MG1 TAB DAILY 1 DAILY BY MOUTH
     Route: 048
  2. ATORVASTIN [Concomitant]
  3. AMLODIPINE BESYLATE [Concomitant]
  4. OXYBUTYNIN [Concomitant]
  5. ASPIRIN [Concomitant]
  6. VITAMIN D3 [Concomitant]
  7. IRON [Concomitant]
  8. VITAMIN B-12 [Concomitant]

REACTIONS (2)
  - Pruritus [None]
  - Acne [None]
